FAERS Safety Report 21055738 (Version 1)
Quarter: 2022Q3

REPORT INFORMATION
  Report Type: Spontaneous
  Country: JP (occurrence: JP)
  Receive Date: 20220708
  Receipt Date: 20220708
  Transmission Date: 20221027
  Serious: Yes (Other)
  Sender: FDA-Public Use
  Company Number: JP-SUN PHARMACEUTICAL INDUSTRIES LTD-2022R1-343396

PATIENT
  Age: 36 Year
  Sex: Male

DRUGS (1)
  1. SULINDAC [Suspect]
     Active Substance: SULINDAC
     Indication: Desmoid tumour
     Route: 065

REACTIONS (1)
  - Disease progression [Unknown]
